FAERS Safety Report 7415457-1 (Version None)
Quarter: 2011Q2

REPORT INFORMATION
  Report Type: 
  Country: None (occurrence: None)
  Receive Date: 20110414
  Receipt Date: 20110404
  Transmission Date: 20111010
  Serious: Yes (Other)
  Sender: FDA-Public Use
  Company Number: US-AMGEN-USASP2011017749

PATIENT
  Age: 54 Year
  Sex: Female

DRUGS (3)
  1. ENBREL [Suspect]
     Indication: FIBROMYALGIA
  2. ENBREL [Suspect]
     Indication: RHEUMATOID ARTHRITIS
     Dosage: 50 MG, QWK
     Dates: start: 20110325
  3. ENBREL [Suspect]
     Indication: OSTEOPOROSIS

REACTIONS (8)
  - MALAISE [None]
  - ARTHRALGIA [None]
  - FATIGUE [None]
  - RHEUMATOID ARTHRITIS [None]
  - HEADACHE [None]
  - THROAT TIGHTNESS [None]
  - LIMB DISCOMFORT [None]
  - INJECTION SITE PAIN [None]
